FAERS Safety Report 15723636 (Version 4)
Quarter: 2019Q1

REPORT INFORMATION
  Report Type: Report from Study
  Country: CA (occurrence: CA)
  Receive Date: 20181214
  Receipt Date: 20190125
  Transmission Date: 20190417
  Serious: Yes (Other)
  Sender: FDA-Public Use
  Company Number: CA-JNJFOC-20180913449

PATIENT
  Age: 36 Year
  Sex: Female
  Weight: 63.5 kg

DRUGS (4)
  1. REMICADE [Suspect]
     Active Substance: INFLIXIMAB
     Indication: CROHN^S DISEASE
     Dosage: STRENGTH = 100 MG??ALSO REPORTED AS 10 MG/KG
     Route: 042
     Dates: start: 20180214, end: 20181206
  2. PREGABALIN. [Concomitant]
     Active Substance: PREGABALIN
     Route: 048
  3. DULOXETINE. [Concomitant]
     Active Substance: DULOXETINE
     Route: 048
  4. LYRICA [Concomitant]
     Active Substance: PREGABALIN
     Route: 065

REACTIONS (8)
  - General physical health deterioration [Unknown]
  - Lupus-like syndrome [Not Recovered/Not Resolved]
  - Drug ineffective [Unknown]
  - Off label use [Unknown]
  - Product use issue [Unknown]
  - Gastrointestinal inflammation [Unknown]
  - Fungal infection [Unknown]
  - Drug level below therapeutic [Unknown]

NARRATIVE: CASE EVENT DATE: 20180214
